FAERS Safety Report 25990127 (Version 2)
Quarter: 2025Q4

REPORT INFORMATION
  Report Type: Report from Study
  Country: EU (occurrence: EU)
  Receive Date: 20251103
  Receipt Date: 20251105
  Transmission Date: 20260118
  Serious: Yes (Death)
  Sender: PFIZER
  Company Number: EU-PFIZER INC-PV202500129001

PATIENT

DRUGS (2)
  1. RITUXIMAB [Suspect]
     Active Substance: RITUXIMAB
     Indication: Glomerular vascular disorder
     Dosage: 375 MG/M2 (IN THE PERIOD OF INDUCTION THERAPY)
     Route: 042
  2. RITUXIMAB [Suspect]
     Active Substance: RITUXIMAB
     Indication: Vasculitis

REACTIONS (1)
  - Pneumonia fungal [Fatal]
